FAERS Safety Report 24948321 (Version 2)
Quarter: 2025Q1

REPORT INFORMATION
  Report Type: Report from Study
  Country: CA (occurrence: CA)
  Receive Date: 20250210
  Receipt Date: 20250325
  Transmission Date: 20250409
  Serious: Yes (Other)
  Sender: JOHNSON AND JOHNSON
  Company Number: CA-JNJFOC-20250205345

PATIENT
  Age: 13 Year
  Sex: Male
  Weight: 44 kg

DRUGS (2)
  1. REMICADE [Suspect]
     Active Substance: INFLIXIMAB
     Indication: Colitis ulcerative
     Dosage: 5 NUMBER OF UNITS INVOLVED IN THIS COMPLAINT
     Route: 041
     Dates: start: 20220916
  2. REMICADE [Suspect]
     Active Substance: INFLIXIMAB
     Dosage: 5 NUMBER OF UNITS INVOLVED IN THIS COMPLAINT
     Route: 041

REACTIONS (2)
  - Colitis ulcerative [Not Recovered/Not Resolved]
  - Off label use [Unknown]
